FAERS Safety Report 4886216-9 (Version None)
Quarter: 2006Q1

REPORT INFORMATION
  Report Type: 
  Country: None (occurrence: None)
  Receive Date: 20060118
  Receipt Date: 20060104
  Transmission Date: 20060701
  Serious: Yes (Hospitalization, Other)
  Sender: FDA-Public Use
  Company Number: 2005-12-0101

PATIENT
  Age: 57 Year
  Sex: Male
  Weight: 77.1115 kg

DRUGS (6)
  1. CLARITIN-D ALLERGY/CONSTIPATION 24 HR (LORATADINE/PSEU  EXTENDED RELEA [Suspect]
     Indication: SINUS CONGESTION
     Dosage: ONE TAB ORAL
     Route: 048
     Dates: start: 20051126, end: 20051126
  2. ZETIA [Suspect]
  3. ANGIOTENSIN CONVERTING ENZYME INHIBITOR (NOS) TABLETS [Suspect]
  4. FOLIC ACID [Concomitant]
  5. LISINOPRIL [Concomitant]
  6. LIPITOR [Concomitant]

REACTIONS (1)
  - ANGIONEUROTIC OEDEMA [None]
